FAERS Safety Report 6213530-7 (Version None)
Quarter: 2009Q2

REPORT INFORMATION
  Report Type: 
  Country: None (occurrence: None)
  Receive Date: 20090603
  Receipt Date: 20090601
  Transmission Date: 20091009
  Serious: No
  Sender: FDA-Public Use
  Company Number: US-JNJFOC-20090600844

PATIENT
  Sex: Female
  Weight: 112.04 kg

DRUGS (3)
  1. DURAGESIC-100 [Suspect]
     Indication: DRUG USE FOR UNKNOWN INDICATION
     Route: 062
  2. ANAPRIL [Concomitant]
     Indication: HYPERTENSION
     Route: 065
  3. TENORMIN [Concomitant]
     Indication: HYPERTENSION
     Route: 065

REACTIONS (2)
  - INAPPROPRIATE SCHEDULE OF DRUG ADMINISTRATION [None]
  - MUSCLE SPASMS [None]
